APPROVED DRUG PRODUCT: IBUPROFEN
Active Ingredient: IBUPROFEN
Strength: 800MG
Dosage Form/Route: TABLET;ORAL
Application: A070986 | Product #001
Applicant: STRIDES PHARMA INTERNATIONAL AG
Approved: Jul 25, 1986 | RLD: No | RS: No | Type: DISCN